FAERS Safety Report 24390460 (Version 1)
Quarter: 2024Q4

REPORT INFORMATION
  Report Type: Spontaneous
  Country: MY (occurrence: MY)
  Receive Date: 20241003
  Receipt Date: 20241003
  Transmission Date: 20250114
  Serious: Yes (Other)
  Sender: ROCHE
  Company Number: MY-002147023-NVSC2024MY192282

PATIENT

DRUGS (1)
  1. XOLAIR [Suspect]
     Active Substance: OMALIZUMAB
     Indication: Mast cell activation syndrome
     Dosage: UNK
     Route: 065

REACTIONS (3)
  - Mast cell activation syndrome [Unknown]
  - Condition aggravated [Unknown]
  - Off label use [Unknown]
